FAERS Safety Report 25826586 (Version 1)
Quarter: 2025Q3

REPORT INFORMATION
  Report Type: Spontaneous
  Country: GB (occurrence: GB)
  Receive Date: 20250920
  Receipt Date: 20250920
  Transmission Date: 20251021
  Serious: Yes (Other)
  Sender: AUROBINDO
  Company Number: GB-MHRA-MED-202509101113312190-MFLQB

PATIENT
  Age: 38 Year
  Sex: Male

DRUGS (1)
  1. SILDENAFIL [Suspect]
     Active Substance: SILDENAFIL
     Indication: Product used for unknown indication
     Route: 065

REACTIONS (1)
  - Constipation [Recovering/Resolving]

NARRATIVE: CASE EVENT DATE: 20250903
